FAERS Safety Report 8241322-6 (Version None)
Quarter: 2012Q1

REPORT INFORMATION
  Report Type: 
  Country: None (occurrence: None)
  Receive Date: 20120328
  Receipt Date: 20120320
  Transmission Date: 20120608
  Serious: Yes (Other)
  Sender: FDA-Public Use
  Company Number: US-PFIZER INC-2012074355

PATIENT
  Age: 30 Year
  Sex: Female

DRUGS (2)
  1. PRISTIQ [Suspect]
     Dosage: UNK
  2. WELLBUTRIN [Suspect]
     Dosage: UNK

REACTIONS (2)
  - POLYCYSTIC OVARIES [None]
  - OLIGOMENORRHOEA [None]
